FAERS Safety Report 24657087 (Version 1)
Quarter: 2024Q4

REPORT INFORMATION
  Report Type: Spontaneous
  Country: IT (occurrence: IT)
  Receive Date: 20241125
  Receipt Date: 20241125
  Transmission Date: 20250114
  Serious: Yes (Other)
  Sender: PANACEA BIOTEC PHARMA LIMITED
  Company Number: IT-PBT-009875

PATIENT
  Age: 10 Year
  Sex: Female

DRUGS (7)
  1. TACROLIMUS [Suspect]
     Active Substance: TACROLIMUS
     Indication: Prophylaxis against graft versus host disease
     Route: 065
  2. MYCOPHENOLATE MOFETIL [Suspect]
     Active Substance: MYCOPHENOLATE MOFETIL
     Indication: Prophylaxis against graft versus host disease
     Route: 065
  3. CYCLOSPORINE [Suspect]
     Active Substance: CYCLOSPORINE
     Indication: Haemophagocytic lymphohistiocytosis
     Route: 065
  4. VALGANCICLOVIR [Suspect]
     Active Substance: VALGANCICLOVIR
     Indication: Cytomegalovirus infection reactivation
     Route: 065
  5. RUXOLITINIB [Suspect]
     Active Substance: RUXOLITINIB
     Indication: Prophylaxis against graft versus host disease
     Route: 065
  6. FOSCARNET [Concomitant]
     Active Substance: FOSCARNET
     Indication: Cytomegalovirus infection reactivation
     Route: 065
  7. TACROLIMUS [Suspect]
     Active Substance: TACROLIMUS
     Indication: Prophylaxis against graft versus host disease
     Route: 065

REACTIONS (6)
  - Renal impairment [Recovered/Resolved]
  - Cytokine release syndrome [Unknown]
  - Acute respiratory failure [Unknown]
  - Hyperuricaemia [Recovered/Resolved]
  - Cytomegalovirus infection reactivation [Unknown]
  - Drug effective for unapproved indication [Unknown]
